FAERS Safety Report 8278036-2 (Version None)
Quarter: 2012Q2

REPORT INFORMATION
  Report Type: 
  Country: None (occurrence: None)
  Receive Date: 20120412
  Receipt Date: 20120404
  Transmission Date: 20120825
  Serious: Yes (Disabling)
  Sender: FDA-Public Use
  Company Number: IL-ROCHE-1043435

PATIENT
  Age: 60 Year
  Sex: Female
  Weight: 51.5 kg

DRUGS (6)
  1. FEXOFENADINE HCL [Concomitant]
  2. PREDNISONE TAB [Concomitant]
     Dates: start: 20120223
  3. PREDNISONE TAB [Concomitant]
     Dates: start: 20110704
  4. VEMURAFENIB [Suspect]
     Indication: METASTATIC MALIGNANT MELANOMA
     Dosage: DOSE FORM: PILL, PERMANENTLY INTERRUPTED
     Route: 048
     Dates: start: 20110623, end: 20120130
  5. PAMIDRONATE DISODIUM [Suspect]
     Indication: PRODUCT USED FOR UNKNOWN INDICATION
     Dosage: ROUTE, DOSE, FORM AND FREQUENCY: NOT REPORTED
  6. PAMIDRONATE DISODIUM [Concomitant]
     Dates: start: 20110201

REACTIONS (1)
  - GLOMERULONEPHRITIS MINIMAL LESION [None]
